FAERS Safety Report 15136718 (Version 1)
Quarter: 2018Q3

REPORT INFORMATION
  Report Type: Spontaneous
  Country: JP (occurrence: JP)
  Receive Date: 20180712
  Receipt Date: 20180712
  Transmission Date: 20181010
  Serious: Yes (Other)
  Sender: FDA-Public Use
  Company Number: JP-MYLANLABS-2018M1050300

PATIENT
  Age: 33 Year
  Sex: Female
  Weight: 74 kg

DRUGS (5)
  1. BUPIVACAINE. [Suspect]
     Active Substance: BUPIVACAINE
     Indication: ANAESTHESIA
     Route: 050
  2. OXYTOCIN. [Suspect]
     Active Substance: OXYTOCIN
     Indication: UTERINE CONTRACTIONS DURING PREGNANCY
     Dosage: 10 UNITS
     Route: 050
  3. FENTANYL. [Suspect]
     Active Substance: FENTANYL
     Indication: ANAESTHESIA
     Route: 050
  4. LIDOCAINE. [Suspect]
     Active Substance: LIDOCAINE
     Indication: ANAESTHESIA
     Dosage: 2% LIDOCAINE IN 10ML INJECTION
     Route: 050
  5. MORPHINE [Suspect]
     Active Substance: MORPHINE
     Indication: ANAESTHESIA
     Route: 050

REACTIONS (4)
  - Maternal exposure during delivery [Recovered/Resolved]
  - Loss of consciousness [Recovered/Resolved]
  - Hypotension [Recovered/Resolved]
  - Dyspnoea [Recovered/Resolved]
